FAERS Safety Report 10149142 (Version 1)
Quarter: 2014Q2

REPORT INFORMATION
  Report Type: Spontaneous
  Country: ES (occurrence: ES)
  Receive Date: 20140502
  Receipt Date: 20140502
  Transmission Date: 20141212
  Serious: Yes (Hospitalization)
  Sender: FDA-Public Use
  Company Number: ES-ACCORD-023423

PATIENT
  Age: 23 Year
  Sex: Female

DRUGS (1)
  1. MYCOPHENOLIC ACID [Suspect]
     Indication: LUPUS NEPHRITIS

REACTIONS (3)
  - Systemic lupus erythematosus [Recovered/Resolved]
  - Off label use [Unknown]
  - Treatment noncompliance [Unknown]
